FAERS Safety Report 12253973 (Version 1)
Quarter: 2016Q2

REPORT INFORMATION
  Report Type: Spontaneous
  Country: JP (occurrence: JP)
  Receive Date: 20160411
  Receipt Date: 20160411
  Transmission Date: 20160815
  Serious: Yes (Hospitalization, Other)
  Sender: FDA-Public Use
  Company Number: JP-ELI LILLY CANADA, INC-BMS-2016-003996

PATIENT
  Age: 70 Year
  Sex: Male
  Weight: 68 kg

DRUGS (10)
  1. IRINOTECAN [Suspect]
     Active Substance: IRINOTECAN
     Indication: COLON CANCER
     Dosage: 270 MG, UNKNOWN
     Route: 042
     Dates: start: 20150915
  2. FLUOROURACIL. [Suspect]
     Active Substance: FLUOROURACIL
     Indication: COLON CANCER
     Dosage: 4950 MG, UNKNOWN
     Route: 042
     Dates: start: 20150915
  3. ALOXI [Concomitant]
     Active Substance: PALONOSETRON HYDROCHLORIDE
     Indication: PRODUCT USED FOR UNKNOWN INDICATION
     Dosage: .75 MG, UNK
     Route: 065
     Dates: start: 20150915
  4. ERBITUX [Suspect]
     Active Substance: CETUXIMAB
     Indication: COLON CANCER
     Dosage: 700 MG, OTHER
     Route: 042
     Dates: start: 20151117, end: 20151229
  5. ERBITUX [Suspect]
     Active Substance: CETUXIMAB
     Dosage: 880 MG, OTHER
     Route: 042
  6. IRINOTECAN [Suspect]
     Active Substance: IRINOTECAN
     Dosage: 270 MG, UNK
     Dates: start: 20150915
  7. LEVOFOLINATE [Concomitant]
     Active Substance: LEVOLEUCOVORIN CALCIUM
     Indication: COLON CANCER
     Dosage: 370 MG, UNKNOWN
     Route: 065
     Dates: start: 20150915
  8. FOLFIRI [Concomitant]
     Active Substance: FLUOROURACIL\IRINOTECAN\LEUCOVORIN
     Indication: METASTASES TO LYMPH NODES
  9. FOLFIRI [Concomitant]
     Active Substance: FLUOROURACIL\IRINOTECAN\LEUCOVORIN
     Indication: COLON CANCER
     Dosage: UNK
     Dates: start: 20150915
  10. FOLFIRI [Concomitant]
     Active Substance: FLUOROURACIL\IRINOTECAN\LEUCOVORIN
     Indication: METASTASES TO LIVER

REACTIONS (4)
  - Decreased appetite [Recovered/Resolved]
  - Interstitial lung disease [Not Recovered/Not Resolved]
  - Off label use [Unknown]
  - Muscular weakness [Recovering/Resolving]

NARRATIVE: CASE EVENT DATE: 20160104
